FAERS Safety Report 8406429-9 (Version None)
Quarter: 2012Q2

REPORT INFORMATION
  Report Type: 
  Country: None (occurrence: None)
  Receive Date: 20120529
  Receipt Date: 20061012
  Transmission Date: 20120825
  Serious: Yes (Other)
  Sender: FDA-Public Use
  Company Number: JP-2012-13096

PATIENT

DRUGS (1)
  1. PLETAL [Suspect]
     Indication: CEREBRAL INFARCTION

REACTIONS (1)
  - FEMUR FRACTURE [None]
